FAERS Safety Report 15931536 (Version 1)
Quarter: 2019Q1

REPORT INFORMATION
  Report Type: Spontaneous
  Country: FR (occurrence: FR)
  Receive Date: 20190207
  Receipt Date: 20190207
  Transmission Date: 20190417
  Serious: Yes (Other)
  Sender: FDA-Public Use
  Company Number: PHHY2019FR005721

PATIENT
  Age: 61 Year
  Sex: Male

DRUGS (3)
  1. DORZOLAMIDE [Concomitant]
     Active Substance: DORZOLAMIDE
     Indication: OPEN ANGLE GLAUCOMA
     Dosage: UNK UKN, BID
     Route: 065
  2. BRIMONIDINE TARTRATE (ALC) [Suspect]
     Active Substance: BRIMONIDINE TARTRATE
     Indication: OPEN ANGLE GLAUCOMA
     Dosage: UNK UKN, BID
     Route: 047
  3. TIMOLOL;TRAVOPROST [Concomitant]
     Active Substance: TIMOLOL\TRAVOPROST
     Indication: OPEN ANGLE GLAUCOMA
     Dosage: UNK UKN, QD
     Route: 065

REACTIONS (6)
  - Blepharitis [Unknown]
  - Concomitant disease aggravated [Recovering/Resolving]
  - Toxicity to various agents [Unknown]
  - Ocular surface disease [Recovering/Resolving]
  - Hyperaemia [Recovering/Resolving]
  - Intraocular pressure increased [Recovering/Resolving]
